FAERS Safety Report 7306480-6 (Version None)
Quarter: 2011Q1

REPORT INFORMATION
  Report Type: 
  Country: None (occurrence: None)
  Receive Date: 20110210
  Receipt Date: 20110125
  Transmission Date: 20110831
  Serious: Yes (Life-Threatening)
  Sender: FDA-Public Use
  Company Number: 821044

PATIENT
  Sex: Male

DRUGS (1)
  1. (PHENYLEPHRINE) [Suspect]
     Dates: start: 20101025, end: 20101025

REACTIONS (5)
  - WRONG DRUG ADMINISTERED [None]
  - OXYGEN SATURATION DECREASED [None]
  - ARTHRITIS INFECTIVE [None]
  - COMA [None]
  - MEDICATION ERROR [None]
